FAERS Safety Report 24694493 (Version 3)
Quarter: 2025Q1

REPORT INFORMATION
  Report Type: Spontaneous
  Country: KR (occurrence: KR)
  Receive Date: 20241204
  Receipt Date: 20250105
  Transmission Date: 20250409
  Serious: Yes (Hospitalization)
  Sender: JOHNSON AND JOHNSON
  Company Number: KR-JNJFOC-20241201250

PATIENT
  Age: 25 Year
  Sex: Female

DRUGS (10)
  1. INVEGA SUSTENNA [Suspect]
     Active Substance: PALIPERIDONE PALMITATE
     Indication: Product used for unknown indication
     Route: 030
  2. INVEGA SUSTENNA [Suspect]
     Active Substance: PALIPERIDONE PALMITATE
  3. INVEGA SUSTENNA [Suspect]
     Active Substance: PALIPERIDONE PALMITATE
  4. INVEGA [Suspect]
     Active Substance: PALIPERIDONE
     Indication: Product used for unknown indication
     Route: 048
  5. ARIPIPRAZOLE [Concomitant]
     Active Substance: ARIPIPRAZOLE
  6. LITHIUM [Concomitant]
     Active Substance: LITHIUM
  7. VALPROATE [Concomitant]
     Active Substance: VALPROIC ACID
  8. BENZTROPINE [Concomitant]
     Active Substance: BENZTROPINE
  9. LORAZEPAM [Concomitant]
     Active Substance: LORAZEPAM
  10. ATOMOXETINE [Concomitant]
     Active Substance: ATOMOXETINE

REACTIONS (2)
  - Aggression [Unknown]
  - Condition aggravated [Unknown]
